FAERS Safety Report 5566795-9 (Version None)
Quarter: 2007Q4

REPORT INFORMATION
  Report Type: 
  Country: None (occurrence: None)
  Receive Date: 20071219
  Receipt Date: 20071214
  Transmission Date: 20080405
  Serious: Yes (Other)
  Sender: FDA-Public Use
  Company Number: A0699644A

PATIENT
  Age: 21 Year
  Sex: Female

DRUGS (5)
  1. WELLBUTRIN [Suspect]
     Indication: DRUG USE FOR UNKNOWN INDICATION
     Dosage: 150MG ALTERNATE DAYS
     Route: 065
  2. EFFEXOR [Suspect]
     Indication: DRUG USE FOR UNKNOWN INDICATION
     Dosage: 150MG PER DAY
     Route: 065
  3. ATIVAN [Concomitant]
  4. BIRTH CONTROL [Concomitant]
     Route: 048
  5. VITAMIN CAP [Concomitant]

REACTIONS (8)
  - ANOREXIA [None]
  - ANXIETY [None]
  - FEAR [None]
  - HYPERHIDROSIS [None]
  - INSOMNIA [None]
  - MOBILITY DECREASED [None]
  - PHOTOPHOBIA [None]
  - SOMNOLENCE [None]
